FAERS Safety Report 6209684-9 (Version None)
Quarter: 2009Q2

REPORT INFORMATION
  Report Type: 
  Country: None (occurrence: None)
  Receive Date: 20090601
  Receipt Date: 20090501
  Transmission Date: 20091009
  Serious: Yes (Other)
  Sender: FDA-Public Use
  Company Number: US-PFIZER INC-2008080744

PATIENT
  Sex: Female

DRUGS (5)
  1. LYRICA [Suspect]
  2. NEURONTIN [Suspect]
     Indication: PAIN
  3. MOTRIN [Concomitant]
  4. CALCIUM [Concomitant]
  5. TYLENOL (CAPLET) [Concomitant]

REACTIONS (29)
  - ANXIETY [None]
  - ASTHENIA [None]
  - CEREBRAL ISCHAEMIA [None]
  - DERMATITIS BULLOUS [None]
  - DIZZINESS [None]
  - ENTEROBACTER INFECTION [None]
  - FRACTURED SACRUM [None]
  - GRANULOMA [None]
  - HAEMORRHAGE [None]
  - HYPERHIDROSIS [None]
  - INFLUENZA [None]
  - NAIL DYSTROPHY [None]
  - ONYCHOMADESIS [None]
  - ONYCHOMYCOSIS [None]
  - PAIN [None]
  - PRURITUS [None]
  - PSEUDOMONAS INFECTION [None]
  - PURPURA [None]
  - RASH [None]
  - SKIN DISORDER [None]
  - SKIN HAEMORRHAGE [None]
  - SKIN PAPILLOMA [None]
  - SPINAL COLUMN STENOSIS [None]
  - SPINAL OSTEOARTHRITIS [None]
  - STAPHYLOCOCCAL INFECTION [None]
  - TINEA PEDIS [None]
  - URTICARIA [None]
  - VAGINAL DISCHARGE [None]
  - VISUAL IMPAIRMENT [None]
